FAERS Safety Report 14098205 (Version 7)
Quarter: 2018Q1

REPORT INFORMATION
  Report Type: Spontaneous
  Country: GB (occurrence: GB)
  Receive Date: 20171017
  Receipt Date: 20180329
  Transmission Date: 20180508
  Serious: Yes (Hospitalization, Disabling, Other)
  Sender: FDA-Public Use
  Company Number: GB-RECKITT BENCKISER HEALTHCARE INT LIMITED-RB-96402-2017

PATIENT
  Age: 42 Year
  Sex: Female
  Weight: 66 kg

DRUGS (1)
  1. DETTOL FIRST AID ANTISEPTIC [Suspect]
     Active Substance: CHLOROXYLENOL
     Indication: WOUND TREATMENT
     Dosage: UNK
     Route: 061
     Dates: start: 20170625, end: 20170625

REACTIONS (3)
  - Application site burn [Unknown]
  - Blister [Recovered/Resolved]
  - Loss of personal independence in daily activities [Unknown]

NARRATIVE: CASE EVENT DATE: 2017
